FAERS Safety Report 11350556 (Version 4)
Quarter: 2016Q2

REPORT INFORMATION
  Report Type: Spontaneous
  Country: AU (occurrence: AU)
  Receive Date: 20150807
  Receipt Date: 20160407
  Transmission Date: 20160815
  Serious: Yes (Death, Hospitalization, Other)
  Sender: FDA-Public Use
  Company Number: AU-JNJFOC-20150722279

PATIENT
  Age: 21 Year
  Sex: Male

DRUGS (2)
  1. FENTANYL. [Suspect]
     Active Substance: FENTANYL
     Indication: MYALGIA
     Route: 062
     Dates: start: 201504
  2. FENTANYL. [Suspect]
     Active Substance: FENTANYL
     Indication: PAIN IN EXTREMITY
     Route: 062
     Dates: start: 201504

REACTIONS (5)
  - Product use issue [Unknown]
  - Coma [Fatal]
  - Overdose [Fatal]
  - Incorrect drug administration rate [Fatal]
  - Drug diversion [Unknown]

NARRATIVE: CASE EVENT DATE: 201504
